FAERS Safety Report 12278890 (Version 1)
Quarter: 2016Q2

REPORT INFORMATION
  Report Type: Spontaneous
  Country: US (occurrence: US)
  Receive Date: 20160418
  Receipt Date: 20160418
  Transmission Date: 20160815
  Serious: Yes (Other)
  Sender: FDA-Public Use
  Company Number: US-MDT-ADR-2016-00058

PATIENT
  Age: 41 Year
  Sex: Male

DRUGS (1)
  1. LIORESAL [Suspect]
     Active Substance: BACLOFEN
     Route: 037

REACTIONS (4)
  - Infusion site extravasation [Unknown]
  - Implant site extravasation [Unknown]
  - Post lumbar puncture syndrome [Unknown]
  - Cerebrospinal fluid leakage [Unknown]

NARRATIVE: CASE EVENT DATE: 201509
